FAERS Safety Report 9602360 (Version 1)
Quarter: 2013Q4

REPORT INFORMATION
  Report Type: Spontaneous
  Country: US (occurrence: US)
  Receive Date: 20131007
  Receipt Date: 20131007
  Transmission Date: 20140711
  Serious: Yes (Other)
  Sender: FDA-Public Use
  Company Number: PHHY2013US111052

PATIENT
  Age: 33 Year
  Sex: Female

DRUGS (3)
  1. ESTRADIOL [Suspect]
     Dosage: 12 MG, UNK
     Route: 048
  2. PROGESTERONE [Suspect]
     Dosage: 100 MG, UNK
     Route: 030
  3. LEVOTHYROXINE [Concomitant]

REACTIONS (1)
  - Blood thyroid stimulating hormone increased [Unknown]
